FAERS Safety Report 4718722-1 (Version None)
Quarter: 2005Q3

REPORT INFORMATION
  Report Type: 
  Country: None (occurrence: None)
  Receive Date: 20050719
  Receipt Date: 20050712
  Transmission Date: 20060218
  Serious: Yes (Death, Life-Threatening, Hospitalization)
  Sender: FDA-Public Use
  Company Number: 211868

PATIENT
  Age: 56 Year
  Sex: Female
  Weight: 75.7 kg

DRUGS (10)
  1. AVASTIN [Suspect]
     Indication: COLON CANCER
     Dosage: 386 MG, INTRAVENOUS
     Route: 042
     Dates: start: 20040908
  2. ERLOTINIB (ERLOTINIB) TABLET, 100MG [Suspect]
     Indication: COLON CANCER
     Dosage: 100 MG, ORAL
     Route: 048
     Dates: start: 20040908
  3. OXALIPLATIN (OXALIPLATIN) [Suspect]
     Indication: COLON CANCER
     Dosage: 122 MG, INTRAVENOUS
     Route: 042
     Dates: start: 20041208
  4. 5-FU (FLUOROURACIL) [Suspect]
     Indication: COLON CANCER
     Dosage: 376 MG, INTRAVENOUS;  752 MG, INTRAVENOUS
     Route: 042
     Dates: start: 20040908
  5. 5-FU (FLUOROURACIL) [Suspect]
     Indication: COLON CANCER
     Dosage: 376 MG, INTRAVENOUS;  752 MG, INTRAVENOUS
     Route: 042
     Dates: start: 20040908
  6. LEUCOVORIN CALCIUM [Suspect]
     Indication: COLON CANCER
     Dosage: 376 MG, INTRAVENOUS
     Route: 042
     Dates: start: 20040908
  7. PEPCID [Concomitant]
  8. PREMARIN [Concomitant]
  9. LOMOTIL [Concomitant]
  10. COUMADIN [Concomitant]

REACTIONS (29)
  - ANAEMIA [None]
  - ASPHYXIA [None]
  - ASTHENIA [None]
  - BACK PAIN [None]
  - BACTERAEMIA [None]
  - BACTERIAL INFECTION [None]
  - BODY TEMPERATURE INCREASED [None]
  - BURSITIS [None]
  - COMPRESSION FRACTURE [None]
  - CONFUSIONAL STATE [None]
  - DYSARTHRIA [None]
  - ENCEPHALITIS [None]
  - ENCEPHALOPATHY [None]
  - HAEMATOCRIT INCREASED [None]
  - HAEMATOMA [None]
  - HAEMOGLOBIN DECREASED [None]
  - HYPOKALAEMIA [None]
  - INTERNATIONAL NORMALISED RATIO INCREASED [None]
  - MENINGITIS BACTERIAL [None]
  - MENINGITIS VIRAL [None]
  - METASTASES TO SOFT TISSUE [None]
  - MUSCLE SWELLING [None]
  - MYOCLONUS [None]
  - PELVIC MASS [None]
  - PNEUMONIA [None]
  - PNEUMONIA ASPIRATION [None]
  - SPINAL FRACTURE [None]
  - STAPHYLOCOCCAL SEPSIS [None]
  - THROMBOCYTOPENIA [None]
